FAERS Safety Report 5268494-X (Version None)
Quarter: 2007Q1

REPORT INFORMATION
  Report Type: 
  Country: None (occurrence: None)
  Receive Date: 20061213
  Receipt Date: 20040804
  Transmission Date: 20070707
  Serious: Yes (Other)
  Sender: FDA-Public Use
  Company Number: 2004UW16563

PATIENT
  Age: 86 Year
  Sex: Male
  Weight: 70.7611 kg

DRUGS (13)
  1. IRESSA [Suspect]
     Indication: NON-SMALL CELL LUNG CANCER
     Dosage: 250 MG PO
     Route: 048
  2. NO MATCH [Concomitant]
  3. RADIATION [Concomitant]
  4. METROGEL [Concomitant]
  5. DOXAZOSIN MESYLATE [Concomitant]
  6. DOXYCYCLINE [Concomitant]
  7. ATENOLOL [Concomitant]
  8. SAW PALMETTO [Concomitant]
  9. ASPIRIN [Concomitant]
  10. GARLIC [Concomitant]
  11. CALCIUM [Concomitant]
  12. BEE POLLEN [Concomitant]
  13. ONE A DAY [Concomitant]

REACTIONS (2)
  - DRUG INEFFECTIVE [None]
  - WHITE BLOOD CELL COUNT DECREASED [None]
